FAERS Safety Report 9162271 (Version 1)
Quarter: 2013Q1

REPORT INFORMATION
  Report Type: Spontaneous
  Country: US (occurrence: US)
  Receive Date: 20130314
  Receipt Date: 20130314
  Transmission Date: 20140127
  Serious: Yes (Death)
  Sender: FDA-Public Use
  Company Number: PHEH2013US005845

PATIENT
  Sex: Male

DRUGS (4)
  1. ZOMETA [Suspect]
     Indication: LUNG CARCINOMA CELL TYPE UNSPECIFIED STAGE 0
     Dosage: 4 MG, EVERY 28 DAYS
     Route: 042
     Dates: start: 20111028
  2. ZOMETA [Suspect]
     Indication: BONE CANCER
  3. EMEND [Concomitant]
  4. PROCRIT [Concomitant]

REACTIONS (1)
  - Death [Fatal]
